FAERS Safety Report 4630119-1 (Version None)
Quarter: 2005Q2

REPORT INFORMATION
  Report Type: 
  Country: None (occurrence: None)
  Receive Date: 20050408
  Receipt Date: 20050314
  Transmission Date: 20051028
  Serious: Yes (Hospitalization)
  Sender: FDA-Public Use
  Company Number: IT-GLAXOSMITHKLINE-B0375463A

PATIENT
  Age: 39 Year
  Sex: Male

DRUGS (2)
  1. AUGMENTIN [Suspect]
     Indication: INFLUENZA LIKE ILLNESS
     Route: 048
     Dates: start: 20050216, end: 20050223
  2. PARACETAMOL [Concomitant]
     Indication: INFLUENZA LIKE ILLNESS
     Route: 048
     Dates: start: 20050216, end: 20050223

REACTIONS (2)
  - GASTRITIS [None]
  - HEPATITIS [None]
